FAERS Safety Report 15127426 (Version 2)
Quarter: 2018Q3

REPORT INFORMATION
  Report Type: Report from Study
  Country: US (occurrence: US)
  Receive Date: 20180710
  Receipt Date: 20180730
  Transmission Date: 20181010
  Serious: Yes (Hospitalization)
  Sender: FDA-Public Use
  Company Number: US-ACTELION-A-NJ2018-174980

PATIENT
  Age: 69 Year
  Sex: Female

DRUGS (2)
  1. OPSUMIT [Suspect]
     Active Substance: MACITENTAN
     Indication: PULMONARY ARTERIAL HYPERTENSION
     Dosage: 10 MG, QD
     Route: 048
     Dates: start: 20170801
  2. ASPIRIN. [Concomitant]
     Active Substance: ASPIRIN
     Dosage: 325 MG, 1 X QD

REACTIONS (7)
  - Hypotension [Unknown]
  - Hip arthroplasty [Recovered/Resolved]
  - Left ventricular end-diastolic pressure increased [Unknown]
  - Pain [Recovered/Resolved]
  - Pulmonary hypertension [Unknown]
  - Muscle spasms [Unknown]
  - Oedema [Unknown]

NARRATIVE: CASE EVENT DATE: 201712
